FAERS Safety Report 11178632 (Version 1)
Quarter: 2015Q2

REPORT INFORMATION
  Report Type: Spontaneous
  Country: US (occurrence: US)
  Receive Date: 20150610
  Receipt Date: 20150610
  Transmission Date: 20150821
  Serious: Yes (Other)
  Sender: FDA-Public Use
  Company Number: US-PFIZER INC-2015191589

PATIENT
  Age: 34 Year
  Sex: Female
  Weight: 79.37 kg

DRUGS (6)
  1. VIMOVO [Concomitant]
     Active Substance: ESOMEPRAZOLE MAGNESIUM\NAPROXEN
     Dosage: UNK, TWICE A DAY AS NEEDED
  2. SINGULAIR [Concomitant]
     Active Substance: MONTELUKAST SODIUM
     Indication: ASTHMA
     Dosage: 10 MG, UNK
  3. ALPRAZOLAM. [Concomitant]
     Active Substance: ALPRAZOLAM
     Indication: ANXIETY
     Dosage: 1 MG, 3X/DAY
  4. DESOGESTREL ESTRADIOL [Concomitant]
     Indication: CONTRACEPTION
     Dosage: 0.5 MG-0.02 MG AND 0.1 MG, UNK
  5. CHLORZOXAZONE. [Concomitant]
     Active Substance: CHLORZOXAZONE
     Dosage: 500 MG, 2X/DAY
  6. LYRICA [Suspect]
     Active Substance: PREGABALIN
     Indication: FIBROMYALGIA
     Dosage: 150 MG, 3X/DAY

REACTIONS (14)
  - Impaired driving ability [Unknown]
  - Drug effect incomplete [Unknown]
  - Confusional state [Unknown]
  - Asthma [Unknown]
  - Sinusitis [Unknown]
  - Disturbance in attention [Unknown]
  - Euphoric mood [Unknown]
  - Vision blurred [Unknown]
  - Dizziness [Unknown]
  - Hypersensitivity [Unknown]
  - Depressed level of consciousness [Unknown]
  - Somnolence [Unknown]
  - Dysarthria [Unknown]
  - Condition aggravated [Unknown]
